FAERS Safety Report 5910351-7 (Version None)
Quarter: 2008Q4

REPORT INFORMATION
  Report Type: 
  Country: None (occurrence: None)
  Receive Date: 20081007
  Receipt Date: 20080220
  Transmission Date: 20090506
  Serious: Yes (Other)
  Sender: FDA-Public Use
  Company Number: US-ASTRAZENECA-2007UW28190

PATIENT
  Age: 84 Year
  Sex: Female
  Weight: 46.7 kg

DRUGS (9)
  1. ARIMIDEX [Suspect]
     Dates: start: 20071001
  2. LASIX [Concomitant]
  3. SOLATOL [Concomitant]
  4. WARFARIN SODIUM [Concomitant]
  5. ENALAPRIL MALEATE [Concomitant]
  6. MECLINEZ [Concomitant]
  7. SPIRIVA [Concomitant]
  8. POTASSIUM CHLORIDE [Concomitant]
  9. MECHALINE [Concomitant]

REACTIONS (4)
  - MUSCULOSKELETAL PAIN [None]
  - NEOPLASM MALIGNANT [None]
  - PAIN IN EXTREMITY [None]
  - WEIGHT INCREASED [None]
